FAERS Safety Report 9455887 (Version 1)
Quarter: 2013Q3

REPORT INFORMATION
  Report Type: Spontaneous
  Country: AU (occurrence: AU)
  Receive Date: 20130813
  Receipt Date: 20130813
  Transmission Date: 20140515
  Serious: Yes (Other)
  Sender: FDA-Public Use
  Company Number: AU-GENZYME-THYM-1004001

PATIENT
  Sex: 0

DRUGS (6)
  1. THYMOGLOBULIN [Suspect]
     Indication: BONE MARROW CONDITIONING REGIMEN
     Dosage: UNK
     Route: 065
  2. FLUDARA [Suspect]
     Indication: BONE MARROW CONDITIONING REGIMEN
     Dosage: UNK
     Route: 065
  3. TREOSULFAN [Suspect]
     Indication: BONE MARROW CONDITIONING REGIMEN
     Dosage: UNK
     Route: 065
  4. CYCLOPHOSPHAMIDE [Suspect]
     Indication: BONE MARROW CONDITIONING REGIMEN
     Dosage: UNK
     Route: 065
  5. PREDNISOLONE [Suspect]
     Indication: BONE MARROW CONDITIONING REGIMEN
     Dosage: UNK, CONDITIONING
     Route: 065
  6. PREDNISOLONE [Suspect]
     Indication: CHRONIC GRAFT VERSUS HOST DISEASE
     Dosage: UNK, C-GRAFT VERSUS HOST DISEASE
     Route: 065

REACTIONS (1)
  - Osteonecrosis [Unknown]
